FAERS Safety Report 20174047 (Version 1)
Quarter: 2021Q4

REPORT INFORMATION
  Report Type: Spontaneous
  Country: US (occurrence: US)
  Receive Date: 20211213
  Receipt Date: 20211213
  Transmission Date: 20220304
  Serious: No
  Sender: FDA-Public Use
  Company Number: US-TEVA-2021-US-1985780

PATIENT

DRUGS (1)
  1. ETHINYL ESTRADIOL\ETONOGESTREL [Suspect]
     Active Substance: ETHINYL ESTRADIOL\ETONOGESTREL
     Dosage: 0.15 MG IN 1 DAY/0.12 MG IN 1 DAY
     Route: 065
     Dates: start: 202110

REACTIONS (10)
  - Depression [Unknown]
  - Mood swings [Unknown]
  - Irritability [Unknown]
  - Thinking abnormal [Unknown]
  - Anxiety [Unknown]
  - Abdominal discomfort [Unknown]
  - Acne [Unknown]
  - Stress [Unknown]
  - Loss of personal independence in daily activities [Unknown]
  - Product substitution issue [Unknown]

NARRATIVE: CASE EVENT DATE: 20210101
